FAERS Safety Report 5490983-3 (Version None)
Quarter: 2007Q4

REPORT INFORMATION
  Report Type: 
  Country: None (occurrence: None)
  Receive Date: 20071019
  Receipt Date: 20071009
  Transmission Date: 20080405
  Serious: Yes (Hospitalization, Other)
  Sender: FDA-Public Use
  Company Number: US-PFIZER INC-2007084203

PATIENT
  Sex: Male
  Weight: 88.5 kg

DRUGS (3)
  1. GEODON [Suspect]
     Indication: SCHIZOAFFECTIVE DISORDER
     Dosage: DAILY DOSE:60MG
  2. SEROQUEL [Concomitant]
  3. DEPAKOTE [Concomitant]

REACTIONS (3)
  - DYSTONIA [None]
  - RASH [None]
  - RHABDOMYOLYSIS [None]
